FAERS Safety Report 19894714 (Version 3)
Quarter: 2021Q4

REPORT INFORMATION
  Report Type: Report from Study
  Country: BR (occurrence: BR)
  Receive Date: 20210929
  Receipt Date: 20211102
  Transmission Date: 20220303
  Serious: Yes (Hospitalization, Other)
  Sender: FDA-Public Use
  Company Number: BR-MERCK HEALTHCARE KGAA-9253301

PATIENT
  Age: 31 Year
  Sex: Male

DRUGS (3)
  1. CETUXIMAB [Suspect]
     Active Substance: CETUXIMAB
     Indication: Colorectal cancer metastatic
     Dosage: UNK, ONCE IN 2 WEEKS
     Route: 042
     Dates: start: 20201210, end: 20210927
  2. OLANZAPINE [Concomitant]
     Active Substance: OLANZAPINE
     Indication: Product used for unknown indication
     Dosage: UNK
  3. LEVOMEPROMAZINE [Concomitant]
     Active Substance: LEVOMEPROMAZINE
     Indication: Product used for unknown indication
     Dosage: UNK

REACTIONS (9)
  - Feeling abnormal [Unknown]
  - Colostomy closure [Unknown]
  - Weight decreased [Unknown]
  - Malignant neoplasm progression [Recovering/Resolving]
  - Unevaluable event [Unknown]
  - Incisional hernia [Unknown]
  - Hepatic vascular thrombosis [Unknown]
  - Immunodeficiency [Not Recovered/Not Resolved]
  - Off label use [Unknown]

NARRATIVE: CASE EVENT DATE: 20210101
